FAERS Safety Report 4579919-7 (Version None)
Quarter: 2005Q1

REPORT INFORMATION
  Report Type: 
  Country: None (occurrence: None)
  Receive Date: 20050210
  Receipt Date: 20050210
  Transmission Date: 20050727
  Serious: Yes (Other)
  Sender: FDA-Public Use
  Company Number: None

PATIENT
  Age: 61 Year
  Sex: Female
  Weight: 58 kg

DRUGS (3)
  1. IRESSA [Suspect]
     Indication: LUNG NEOPLASM MALIGNANT
     Dosage: 250 MG PO DAILY
     Route: 048
     Dates: start: 20050112
  2. FASLODEX [Suspect]
     Indication: LUNG NEOPLASM MALIGNANT
     Dosage: 500 MG IM DAT 1 DAY 8
     Route: 030
     Dates: start: 20050112
  3. FASLODEX [Suspect]
     Indication: LUNG NEOPLASM MALIGNANT
     Dosage: 500 MG IM DAT 1 DAY 8
     Route: 030
     Dates: start: 20050126

REACTIONS (4)
  - DIARRHOEA [None]
  - MEDICATION ERROR [None]
  - NAUSEA [None]
  - VOMITING [None]
